FAERS Safety Report 6139988-X (Version None)
Quarter: 2009Q2

REPORT INFORMATION
  Report Type: 
  Country: None (occurrence: None)
  Receive Date: 20090401
  Receipt Date: 20090326
  Transmission Date: 20091009
  Serious: Yes (Hospitalization)
  Sender: FDA-Public Use
  Company Number: CN-PFIZER INC-2009190726

PATIENT

DRUGS (3)
  1. CELEBREX [Suspect]
     Indication: INJURY
     Route: 048
     Dates: start: 20090218, end: 20090222
  2. TRIAMCINOLONE [Concomitant]
     Dates: start: 20090201
  3. NEUROTROPIN [Concomitant]
     Dates: start: 20090201

REACTIONS (1)
  - GASTROINTESTINAL HAEMORRHAGE [None]
